FAERS Safety Report 7628192-1 (Version None)
Quarter: 2011Q3

REPORT INFORMATION
  Report Type: 
  Country: None (occurrence: None)
  Receive Date: 20110722
  Receipt Date: 20101220
  Transmission Date: 20111222
  Serious: No
  Sender: FDA-Public Use
  Company Number: US-BAYER-2011-006410

PATIENT
  Sex: Male
  Weight: 106.58 kg

DRUGS (5)
  1. BETASERON [Suspect]
     Indication: PRODUCT USED FOR UNKNOWN INDICATION
     Dosage: 0.3 MG, QOD
     Route: 058
  2. IBUPROFEN [Concomitant]
  3. VITAMIN B-12 [Concomitant]
     Dosage: 250 MCG, UNK
  4. CENTRUM [Concomitant]
  5. VITAMIN D [Concomitant]
     Dosage: 1000 U, UNK

REACTIONS (1)
  - DIARRHOEA [None]
